FAERS Safety Report 18723813 (Version 2)
Quarter: 2021Q1

REPORT INFORMATION
  Report Type: Spontaneous
  Country: US (occurrence: US)
  Receive Date: 20210111
  Receipt Date: 20210119
  Transmission Date: 20210419
  Serious: Yes (Disabling, Other)
  Sender: FDA-Public Use
  Company Number: US-BAYER-2021-016185

PATIENT

DRUGS (2)
  1. LEVAQUIN [Concomitant]
     Active Substance: LEVOFLOXACIN
     Dosage: UNK
  2. CIPRO [Suspect]
     Active Substance: CIPROFLOXACIN HYDROCHLORIDE
     Indication: URINARY TRACT INFECTION

REACTIONS (8)
  - Myalgia [None]
  - Renal pain [None]
  - Pain [None]
  - Kidney infection [Recovered/Resolved]
  - Musculoskeletal pain [None]
  - Nephrolithiasis [None]
  - Arthralgia [Not Recovered/Not Resolved]
  - Bedridden [None]

NARRATIVE: CASE EVENT DATE: 201509
